FAERS Safety Report 7690430-7 (Version None)
Quarter: 2011Q3

REPORT INFORMATION
  Report Type: 
  Country: None (occurrence: None)
  Receive Date: 20110817
  Receipt Date: 20110817
  Transmission Date: 20111222
  Serious: Yes (Other)
  Sender: FDA-Public Use
  Company Number: None

PATIENT
  Sex: Male

DRUGS (1)
  1. FILGRASTIM 300MCG + 480MACG VIALS AMGEN (USA AMGEN CORP) [Suspect]
     Indication: HAEMATOPOIETIC STEM CELL MOBILISATION
     Dosage: 900MCG TO 2760MCG DAILY SQ
     Route: 058
     Dates: start: 20080403, end: 20080410

REACTIONS (2)
  - MYELODYSPLASTIC SYNDROME [None]
  - TREATMENT FAILURE [None]
